FAERS Safety Report 4394534-6 (Version None)
Quarter: 2004Q3

REPORT INFORMATION
  Report Type: 
  Country: None (occurrence: None)
  Receive Date: 20040709
  Receipt Date: 20040709
  Transmission Date: 20050211
  Serious: No
  Sender: FDA-Public Use
  Company Number: None

PATIENT
  Age: 37 Year
  Sex: Female
  Weight: 81.6475 kg

DRUGS (2)
  1. LINCOCIN [Suspect]
     Indication: BRONCHITIS
     Dosage: 1 CC ONCE INTRAMUSCULAR
     Route: 030
     Dates: start: 20040101, end: 20040101
  2. KENALOG-40 [Suspect]
     Dosage: 1 CC ONCE INTRAMUSCULAR
     Route: 030
     Dates: start: 20040624, end: 20040624

REACTIONS (5)
  - BLOOD PRESSURE INCREASED [None]
  - DIZZINESS [None]
  - DYSPNOEA [None]
  - FALL [None]
  - VOMITING [None]
